FAERS Safety Report 13623793 (Version 3)
Quarter: 2017Q3

REPORT INFORMATION
  Report Type: Report from Study
  Country: CA (occurrence: CA)
  Receive Date: 20170608
  Receipt Date: 20170804
  Transmission Date: 20171127
  Serious: Yes (Other)
  Sender: FDA-Public Use
  Company Number: CA-ROCHE-1944426

PATIENT
  Sex: Female

DRUGS (8)
  1. ACTEMRA [Suspect]
     Active Substance: TOCILIZUMAB
     Route: 058
     Dates: start: 20170617
  2. LYRICA [Concomitant]
     Active Substance: PREGABALIN
  3. FOLIC ACID. [Concomitant]
     Active Substance: FOLIC ACID
  4. QUETIAPINE. [Concomitant]
     Active Substance: QUETIAPINE
  5. ACTEMRA [Suspect]
     Active Substance: TOCILIZUMAB
     Indication: RHEUMATOID ARTHRITIS
     Route: 058
     Dates: start: 20170520
  6. SULFASALAZINE. [Concomitant]
     Active Substance: SULFASALAZINE
  7. METHOTREXATE. [Concomitant]
     Active Substance: METHOTREXATE
  8. TRAZODONE [Concomitant]
     Active Substance: TRAZODONE HYDROCHLORIDE

REACTIONS (4)
  - Diplopia [Not Recovered/Not Resolved]
  - Drug ineffective [Unknown]
  - Arthralgia [Not Recovered/Not Resolved]
  - Peripheral swelling [Not Recovered/Not Resolved]
